FAERS Safety Report 5293889-8 (Version None)
Quarter: 2007Q2

REPORT INFORMATION
  Report Type: 
  Country: None (occurrence: None)
  Receive Date: 20070405
  Receipt Date: 20070328
  Transmission Date: 20071010
  Serious: Yes (Death, Hospitalization)
  Sender: FDA-Public Use
  Company Number: 163-21880-07020478

PATIENT
  Age: 64 Year
  Sex: Female

DRUGS (1)
  1. REVLIMID [Suspect]
     Indication: MYELODYSPLASTIC SYNDROME
     Dosage: 5 - 10MG DAILY, ORAL
     Route: 048
     Dates: start: 20060215, end: 20070301

REACTIONS (6)
  - GENERAL PHYSICAL HEALTH DETERIORATION [None]
  - GINGIVAL INFECTION [None]
  - INFECTION [None]
  - ORAL INFECTION [None]
  - PETECHIAE [None]
  - THROMBOCYTOPENIA [None]
